FAERS Safety Report 6506409-4 (Version None)
Quarter: 2009Q4

REPORT INFORMATION
  Report Type: 
  Country: None (occurrence: None)
  Receive Date: 20091219
  Receipt Date: 20091208
  Transmission Date: 20100525
  Serious: Yes (Other)
  Sender: FDA-Public Use
  Company Number: DE-CUBIST-2009S1000378

PATIENT
  Age: 72 Year
  Sex: Male
  Weight: 65 kg

DRUGS (8)
  1. CUBICIN [Suspect]
     Indication: DEVICE RELATED INFECTION
  2. CUBICIN [Suspect]
     Indication: SKIN INFECTION
  3. CUBICIN [Suspect]
     Indication: SOFT TISSUE INFECTION
  4. CUBICIN [Suspect]
  5. CUBICIN [Suspect]
  6. CUBICIN [Suspect]
  7. IMIPENEM [Concomitant]
     Indication: DRUG USE FOR UNKNOWN INDICATION
  8. CLARITHROMYCIN [Concomitant]
     Indication: DRUG USE FOR UNKNOWN INDICATION

REACTIONS (2)
  - BLOOD URIC ACID DECREASED [None]
  - HAEMOGLOBIN DECREASED [None]
